FAERS Safety Report 7594689-6 (Version None)
Quarter: 2011Q3

REPORT INFORMATION
  Report Type: 
  Country: None (occurrence: None)
  Receive Date: 20110707
  Receipt Date: 20110622
  Transmission Date: 20111222
  Serious: Yes (Other)
  Sender: FDA-Public Use
  Company Number: JP-JNJFOC-20110606271

PATIENT
  Age: 80 Year
  Sex: Female

DRUGS (4)
  1. GALANTAMINE HYDROBROMIDE [Suspect]
     Route: 048
     Dates: start: 20110426, end: 20110509
  2. GALANTAMINE HYDROBROMIDE [Suspect]
     Indication: DEMENTIA ALZHEIMER'S TYPE
     Route: 048
     Dates: start: 20110328, end: 20110425
  3. GRAMALIL [Concomitant]
     Route: 048
     Dates: start: 20110511
  4. VALSARTAN/HYDROCHLOROTHIAZIDE [Concomitant]
     Indication: HYPERTENSION
     Route: 048
     Dates: start: 20110128

REACTIONS (2)
  - PERSECUTORY DELUSION [None]
  - AGITATION [None]
